FAERS Safety Report 5001848-5 (Version None)
Quarter: 2006Q2

REPORT INFORMATION
  Report Type: 
  Country: None (occurrence: None)
  Receive Date: 20060515
  Receipt Date: 20060424
  Transmission Date: 20061013
  Serious: Yes (Hospitalization)
  Sender: FDA-Public Use
  Company Number: 443943

PATIENT
  Age: 83 Year
  Sex: Male

DRUGS (7)
  1. KREDEX [Suspect]
     Dosage: 12.5MG TWICE PER DAY
     Route: 048
  2. ADANCOR [Suspect]
     Indication: ANGINA PECTORIS
     Dosage: 10MG TWICE PER DAY
     Route: 048
  3. COVERSYL [Suspect]
     Indication: ANGINA PECTORIS
     Dosage: 2MG PER DAY
     Route: 048
     Dates: start: 20060218
  4. CORVASAL [Suspect]
     Indication: ANGINA PECTORIS
     Dosage: 2MG PER DAY
     Route: 048
     Dates: start: 20060219
  5. TARDYFERON [Concomitant]
     Route: 065
  6. PARACETAMOL [Concomitant]
     Route: 065
  7. MOVICOL [Concomitant]
     Route: 065

REACTIONS (4)
  - DRUG INTERACTION [None]
  - FALL [None]
  - HAEMATOMA [None]
  - ORTHOSTATIC HYPOTENSION [None]
